FAERS Safety Report 9010388 (Version 1)
Quarter: 2013Q1

REPORT INFORMATION
  Report Type: Spontaneous
  Country: US (occurrence: US)
  Receive Date: 20130109
  Receipt Date: 20130109
  Transmission Date: 20140127
  Serious: Yes (Other)
  Sender: FDA-Public Use
  Company Number: US-TEVA-379503USA

PATIENT
  Age: 39 Year
  Sex: Male

DRUGS (2)
  1. FLUOXETINE [Suspect]
     Indication: GENERALISED ANXIETY DISORDER
     Dosage: 40 MILLIGRAM DAILY;
     Route: 048
     Dates: start: 201212, end: 20121213
  2. TEGRETOL [Concomitant]
     Dosage: 800MG/DAY; 30 YEARS TO ONGOING

REACTIONS (8)
  - Withdrawal syndrome [Not Recovered/Not Resolved]
  - Anxiety [Not Recovered/Not Resolved]
  - Malaise [Not Recovered/Not Resolved]
  - Tremor [Not Recovered/Not Resolved]
  - Paraesthesia [Not Recovered/Not Resolved]
  - Headache [Not Recovered/Not Resolved]
  - Nausea [Not Recovered/Not Resolved]
  - Dizziness [Not Recovered/Not Resolved]
